FAERS Safety Report 24464863 (Version 1)
Quarter: 2024Q4

REPORT INFORMATION
  Report Type: Report from Study
  Country: US (occurrence: US)
  Receive Date: 20241018
  Receipt Date: 20241018
  Transmission Date: 20250114
  Serious: No
  Sender: ROCHE
  Company Number: US-ROCHE-3509478

PATIENT
  Age: 61 Year
  Sex: Female
  Weight: 64.41 kg

DRUGS (15)
  1. XOLAIR [Suspect]
     Active Substance: OMALIZUMAB
     Indication: Asthma
     Route: 058
  2. XOLAIR [Suspect]
     Active Substance: OMALIZUMAB
     Indication: Asthma
  3. AZITHROMYCIN [Concomitant]
     Active Substance: AZITHROMYCIN
  4. ETHAMBUTOL [Concomitant]
     Active Substance: ETHAMBUTOL HYDROCHLORIDE
  5. RIFAMPIN [Concomitant]
     Active Substance: RIFAMPIN
  6. TRAMADOL [Concomitant]
     Active Substance: TRAMADOL
  7. EPINEPHRINE [Concomitant]
     Active Substance: EPINEPHRINE
  8. ACYCLOVIR [Concomitant]
     Active Substance: ACYCLOVIR
  9. ALBUTEROL [Concomitant]
     Active Substance: ALBUTEROL
  10. LORAZEPAM [Concomitant]
     Active Substance: LORAZEPAM
  11. PANTOPRAZOLE [Concomitant]
     Active Substance: PANTOPRAZOLE
  12. MELOXICAM [Concomitant]
     Active Substance: MELOXICAM
  13. CALCIUM [Concomitant]
     Active Substance: CALCIUM
  14. EPIPEN [Concomitant]
     Active Substance: EPINEPHRINE
  15. FASENRA [Concomitant]
     Active Substance: BENRALIZUMAB
     Indication: Asthma

REACTIONS (2)
  - Off label use [Unknown]
  - No adverse event [Unknown]
